FAERS Safety Report 23290065 (Version 4)
Quarter: 2024Q1

REPORT INFORMATION
  Report Type: Spontaneous
  Country: DE (occurrence: DE)
  Receive Date: 20231212
  Receipt Date: 20240102
  Transmission Date: 20240410
  Serious: Yes (Other)
  Sender: FDA-Public Use
  Company Number: DE-002147023-NVSC2023DE259755

PATIENT
  Age: 61 Year
  Sex: Male

DRUGS (1)
  1. AIMOVIG [Suspect]
     Active Substance: ERENUMAB-AOOE
     Indication: Migraine
     Dosage: UNK
     Route: 065

REACTIONS (2)
  - Haemolytic anaemia [Unknown]
  - Haemoglobin decreased [Unknown]
